FAERS Safety Report 18490780 (Version 1)
Quarter: 2020Q4

REPORT INFORMATION
  Report Type: Spontaneous
  Country: SA (occurrence: SA)
  Receive Date: 20201111
  Receipt Date: 20201111
  Transmission Date: 20210114
  Serious: Yes (Other)
  Sender: FDA-Public Use
  Company Number: SA-PFIZER INC-2020443303

PATIENT
  Age: 29 Year
  Sex: Male

DRUGS (2)
  1. CICLOSPORIN A [Suspect]
     Active Substance: CYCLOSPORINE
     Indication: PROPHYLAXIS AGAINST GRAFT VERSUS HOST DISEASE
     Dosage: UNK
  2. METHOTREXATE SODIUM. [Suspect]
     Active Substance: METHOTREXATE SODIUM
     Indication: PROPHYLAXIS AGAINST GRAFT VERSUS HOST DISEASE
     Dosage: UNK

REACTIONS (5)
  - Cytomegalovirus colitis [Unknown]
  - Graft versus host disease in gastrointestinal tract [Unknown]
  - Drug ineffective [Unknown]
  - Graft versus host disease in skin [Unknown]
  - COVID-19 [Recovered/Resolved]
